FAERS Safety Report 7128812-4 (Version None)
Quarter: 2010Q4

REPORT INFORMATION
  Report Type: 
  Country: None (occurrence: None)
  Receive Date: 20101116
  Receipt Date: 20101102
  Transmission Date: 20110411
  Serious: Yes (Other)
  Sender: FDA-Public Use
  Company Number: 017286

PATIENT
  Sex: Female

DRUGS (3)
  1. KEPPRA [Suspect]
     Indication: EPILEPSY
     Dosage: (500 MG BID)
  2. PRENATAL VITAMINS /01549301/ [Concomitant]
  3. FOLIC ACID [Concomitant]

REACTIONS (2)
  - ABDOMINAL PAIN UPPER [None]
  - OVARIAN CYST RUPTURED [None]
